FAERS Safety Report 24638414 (Version 1)
Quarter: 2024Q4

REPORT INFORMATION
  Report Type: Spontaneous
  Country: US (occurrence: None)
  Receive Date: 20241119
  Receipt Date: 20241119
  Transmission Date: 20250115
  Serious: Yes (Hospitalization)
  Sender: Public
  Company Number: None

PATIENT
  Age: 82 Year
  Sex: Male
  Weight: 66 kg

DRUGS (2)
  1. LINAGLIPTIN [Suspect]
     Active Substance: LINAGLIPTIN
     Indication: Diabetes mellitus
     Dates: end: 20240802
  2. BUMETANIDE [Suspect]
     Active Substance: BUMETANIDE
     Dosage: FREQUENCY : TWICE A DAY;?
     Route: 048
     Dates: end: 20240805

REACTIONS (2)
  - Blister [None]
  - Pemphigoid [None]

NARRATIVE: CASE EVENT DATE: 20240801
